FAERS Safety Report 7376633-X (Version None)
Quarter: 2011Q1

REPORT INFORMATION
  Report Type: 
  Country: None (occurrence: None)
  Receive Date: 20110325
  Receipt Date: 20110317
  Transmission Date: 20110831
  Serious: Yes (Hospitalization)
  Sender: FDA-Public Use
  Company Number: DE-ELI_LILLY_AND_COMPANY-DE201012004408

PATIENT
  Sex: Male
  Weight: 50 kg

DRUGS (5)
  1. PANTOPRAZOLE [Concomitant]
     Indication: REFLUX OESOPHAGITIS
     Dates: start: 20101104
  2. GEMCITABINE HYDROCHLORIDE [Suspect]
     Indication: NON-SMALL CELL LUNG CANCER
     Dosage: 2000 MG, OTHER
     Route: 042
     Dates: start: 20101122, end: 20101213
  3. CISPLATIN [Suspect]
     Indication: NON-SMALL CELL LUNG CANCER
     Dosage: 120 MG, OTHER
     Route: 042
     Dates: start: 20101122, end: 20101214
  4. LAXOBERAL [Concomitant]
     Indication: CONSTIPATION
     Dates: start: 20101214
  5. NALOXONE W/TILIDINE [Concomitant]
     Indication: CANCER PAIN
     Dates: start: 20101123

REACTIONS (6)
  - LEUKOPENIA [None]
  - ANAEMIA [None]
  - PAIN IN EXTREMITY [None]
  - MUCOSAL INFLAMMATION [None]
  - OSTEOLYSIS [None]
  - NEUTROPENIA [None]
